FAERS Safety Report 15426357 (Version 2)
Quarter: 2018Q4

REPORT INFORMATION
  Report Type: Spontaneous
  Country: DE (occurrence: DE)
  Receive Date: 20180925
  Receipt Date: 20181004
  Transmission Date: 20190204
  Serious: Yes (Other)
  Sender: FDA-Public Use
  Company Number: DE-TEVA-2018-DE-958157

PATIENT
  Age: 69 Year
  Sex: Female
  Weight: 90 kg

DRUGS (8)
  1. NATRIUM CHLORATUM D6 NR.8 [Suspect]
     Active Substance: SODIUM CHLORIDE
     Indication: TOXIC NEUROPATHY
     Dosage: 3 X 1
     Route: 048
     Dates: start: 20180517, end: 201805
  2. TORASEMIDE [Suspect]
     Active Substance: TORSEMIDE
     Indication: HYPERTENSION
     Dosage: UNK
     Route: 048
  3. L-THYROXIN [Concomitant]
     Active Substance: LEVOTHYROXINE SODIUM
     Indication: PRODUCT USED FOR UNKNOWN INDICATION
     Dosage: UNK
     Route: 048
  4. HYDROCHLOROTHIAZIDE. [Interacting]
     Active Substance: HYDROCHLOROTHIAZIDE
     Indication: HYPERTENSION
     Dosage: UNK
     Route: 048
  5. ZINC D6 [Concomitant]
     Indication: TOXIC NEUROPATHY
     Dosage: 3 X 1
     Route: 048
     Dates: start: 20180517, end: 201805
  6. MAGNESIUM D6 [Concomitant]
     Indication: TOXIC NEUROPATHY
     Dosage: 1 X 7 TABLETS DAILY
     Route: 048
     Dates: start: 20180517, end: 201805
  7. NEBIVOLOL. [Concomitant]
     Active Substance: NEBIVOLOL
     Indication: HYPERTENSION
     Route: 048
  8. VALSARTAN. [Concomitant]
     Active Substance: VALSARTAN
     Indication: HYPERTENSION
     Dosage: UNK
     Route: 048

REACTIONS (4)
  - Drug effect decreased [Recovering/Resolving]
  - Oedema peripheral [Recovering/Resolving]
  - Drug interaction [Unknown]
  - Muscle spasms [Recovered/Resolved]

NARRATIVE: CASE EVENT DATE: 201805
